FAERS Safety Report 8606892-4 (Version None)
Quarter: 2012Q3

REPORT INFORMATION
  Report Type: 
  Country: None (occurrence: None)
  Receive Date: 20120820
  Receipt Date: 20120814
  Transmission Date: 20120928
  Serious: Yes (Death)
  Sender: FDA-Public Use
  Company Number: NL-BAXTER-2012BAX014623

PATIENT
  Sex: Female

DRUGS (2)
  1. KIOVIG [Suspect]
     Indication: MYASTHENIA GRAVIS
     Route: 065
     Dates: start: 20091231
  2. KIOVIG [Suspect]
     Dosage: 2 VIALS OF 30G EVERY 28 DAYS
     Route: 065
     Dates: start: 20120626, end: 20120626

REACTIONS (1)
  - MYASTHENIA GRAVIS [None]
